FAERS Safety Report 4531749-8 (Version None)
Quarter: 2004Q4

REPORT INFORMATION
  Report Type: 
  Country: None (occurrence: None)
  Receive Date: 20041220
  Receipt Date: 20041108
  Transmission Date: 20050328
  Serious: Yes (Death, Life-Threatening, Hospitalization)
  Sender: FDA-Public Use
  Company Number: CA-ROCHE-385819

PATIENT
  Age: 55 Year
  Sex: Female

DRUGS (10)
  1. XELODA [Suspect]
     Indication: BREAST CANCER
     Route: 048
     Dates: start: 20040515
  2. ANTHRACYCLINE [Concomitant]
  3. PAMIDRONATE DISODIUM [Concomitant]
     Route: 042
  4. CITALOPRAM [Concomitant]
     Dosage: H.S.
  5. TRAZODONE HCL [Concomitant]
     Dosage: H.S.
  6. LORAZEPAM [Concomitant]
     Dosage: P.R.N.
  7. FLURAZEPAM [Concomitant]
     Dosage: H.S.
  8. GABAPENTIN [Concomitant]
     Dosage: H.S.
  9. GLYBURIDE [Concomitant]
     Route: 048
     Dates: start: 20030615
  10. FUROSEMIDE [Concomitant]
     Dates: start: 20041029

REACTIONS (7)
  - ACUTE CORONARY SYNDROME [None]
  - ATRIAL FLUTTER [None]
  - COUGH [None]
  - DYSPNOEA [None]
  - MYOCARDIAL INFARCTION [None]
  - PULMONARY OEDEMA [None]
  - SEPSIS [None]
